FAERS Safety Report 13913757 (Version 1)
Quarter: 2017Q3

REPORT INFORMATION
  Report Type: Spontaneous
  Country: US (occurrence: US)
  Receive Date: 20170828
  Receipt Date: 20170828
  Transmission Date: 20171127
  Serious: No
  Sender: FDA-Public Use
  Company Number: US-ROCHE-1139387

PATIENT
  Sex: Male
  Weight: 18 kg

DRUGS (10)
  1. NUTROPIN AQ [Suspect]
     Active Substance: SOMATROPIN
     Dosage: OR 0.22 ML
     Route: 058
  2. NUTROPIN AQ [Suspect]
     Active Substance: SOMATROPIN
     Dosage: OR 0.28 ML
     Route: 058
  3. NUTROPIN AQ [Suspect]
     Active Substance: SOMATROPIN
     Indication: GROWTH HORMONE DEFICIENCY
     Route: 058
     Dates: start: 199607
  4. NUTROPIN AQ [Suspect]
     Active Substance: SOMATROPIN
     Dosage: OR 0.32 ML
     Route: 058
  5. NUTROPIN AQ [Suspect]
     Active Substance: SOMATROPIN
     Dosage: OR 0.24 ML
     Route: 058
  6. NUTROPIN AQ [Suspect]
     Active Substance: SOMATROPIN
     Route: 058
  7. NUTROPIN AQ [Suspect]
     Active Substance: SOMATROPIN
     Route: 058
  8. NUTROPIN AQ [Suspect]
     Active Substance: SOMATROPIN
     Route: 058
  9. NUTROPIN AQ [Suspect]
     Active Substance: SOMATROPIN
     Route: 058
  10. NUTROPIN AQ [Suspect]
     Active Substance: SOMATROPIN
     Route: 058

REACTIONS (3)
  - Strabismus [Unknown]
  - Blood cholesterol increased [Unknown]
  - Malaise [Unknown]
